FAERS Safety Report 19517087 (Version 1)
Quarter: 2021Q3

REPORT INFORMATION
  Report Type: Spontaneous
  Country: IT (occurrence: IT)
  Receive Date: 20210712
  Receipt Date: 20210712
  Transmission Date: 20211014
  Serious: Yes (Hospitalization, Other)
  Sender: FDA-Public Use
  Company Number: IT-BION-009911

PATIENT
  Age: 76 Year
  Sex: Male

DRUGS (3)
  1. AMOXICILLIN. [Suspect]
     Active Substance: AMOXICILLIN
     Indication: GINGIVITIS
     Dosage: 500 MG BID?INCREASED TO 1 G TID
  2. CLAVULANATE POTASSIUM/CLAVULANIC ACID [Concomitant]
     Active Substance: CLAVULANATE POTASSIUM
     Indication: GINGIVITIS
  3. IBUPROFEN. [Suspect]
     Active Substance: IBUPROFEN
     Indication: TOOTHACHE
     Dosage: HIGH DOSE 600 MG TID

REACTIONS (1)
  - Encephalitis [Recovered/Resolved]
